FAERS Safety Report 18444712 (Version 1)
Quarter: 2020Q4

REPORT INFORMATION
  Report Type: Spontaneous
  Country: GB (occurrence: GB)
  Receive Date: 20201030
  Receipt Date: 20201030
  Transmission Date: 20210114
  Serious: Yes (Other)
  Sender: FDA-Public Use
  Company Number: GB-TEVA-2020-GB-1842289

PATIENT
  Sex: Male
  Weight: 57.15 kg

DRUGS (2)
  1. RISPERIDONE. [Suspect]
     Active Substance: RISPERIDONE
     Indication: BIPOLAR DISORDER
     Dosage: RANGING FROM 2MG TO 10MG AT DIFFERENT TIMES
     Route: 048
     Dates: start: 2013, end: 2018
  2. DEPIXOL (FLUPENTIXOL DECANOATE) [Suspect]
     Active Substance: FLUPENTIXOL DECANOATE
     Indication: BIPOLAR DISORDER
     Dosage: 40 MG
     Route: 051
     Dates: start: 20180101

REACTIONS (11)
  - Acne [Recovered/Resolved with Sequelae]
  - Hypersomnia [Not Recovered/Not Resolved]
  - Sedation [Recovered/Resolved]
  - Rash [Recovered/Resolved with Sequelae]
  - Malaise [Recovered/Resolved]
  - Night sweats [Recovered/Resolved]
  - Anhedonia [Not Recovered/Not Resolved]
  - Food craving [Not Recovered/Not Resolved]
  - Disturbance in attention [Recovered/Resolved]
  - Erectile dysfunction [Not Recovered/Not Resolved]
  - Blunted affect [Not Recovered/Not Resolved]
